FAERS Safety Report 6910609-9 (Version None)
Quarter: 2010Q3

REPORT INFORMATION
  Report Type: 
  Country: None (occurrence: None)
  Receive Date: 20100806
  Receipt Date: 20100729
  Transmission Date: 20110219
  Serious: Yes (Death)
  Sender: FDA-Public Use
  Company Number: JP-ROCHE-700017

PATIENT
  Sex: Female
  Weight: 45 kg

DRUGS (4)
  1. AVASTIN [Suspect]
     Indication: LUNG ADENOCARCINOMA
     Route: 041
     Dates: start: 20100210, end: 20100324
  2. CARBOPLATIN [Concomitant]
     Route: 041
     Dates: start: 20100210, end: 20100324
  3. PACLITAXEL [Concomitant]
     Route: 041
     Dates: start: 20100210, end: 20100324
  4. MUCOSTA [Concomitant]
     Route: 048
     Dates: start: 20100407, end: 20100415

REACTIONS (3)
  - PNEUMONIA ASPIRATION [None]
  - RESPIRATORY FAILURE [None]
  - TRACHEAL FISTULA [None]
